FAERS Safety Report 8314812-5 (Version None)
Quarter: 2012Q2

REPORT INFORMATION
  Report Type: 
  Country: None (occurrence: None)
  Receive Date: 20120426
  Receipt Date: 20120415
  Transmission Date: 20120825
  Serious: No
  Sender: FDA-Public Use
  Company Number: US-BAYER-2012-038777

PATIENT

DRUGS (4)
  1. ALEVE (CAPLET) [Suspect]
     Dosage: 3 U, UNK
     Route: 048
  2. ACETAMINOPHEN [Concomitant]
     Route: 048
  3. ANBESOL [BENZOCAINE] [Concomitant]
     Route: 048
  4. ALEVE (CAPLET) [Suspect]
     Dosage: 6 U, QD
     Route: 048

REACTIONS (1)
  - NO ADVERSE EVENT [None]
